FAERS Safety Report 16825780 (Version 2)
Quarter: 2019Q3

REPORT INFORMATION
  Report Type: Spontaneous
  Country: US (occurrence: US)
  Receive Date: 20190919
  Receipt Date: 20190929
  Transmission Date: 20191005
  Serious: Yes (Life-Threatening, Other)
  Sender: FDA-Public Use
  Company Number: US-AUROBINDO-AUR-APL-2019-059082

PATIENT
  Age: 78 Year
  Sex: Female

DRUGS (2)
  1. ATENOLOL. [Suspect]
     Active Substance: ATENOLOL
     Indication: HYPERTENSION
     Dosage: UNK
     Route: 065
  2. MAGNESIUM [Suspect]
     Active Substance: MAGNESIUM
     Indication: PRODUCT USED FOR UNKNOWN INDICATION
     Dosage: UNK
     Route: 065

REACTIONS (10)
  - Myasthenia gravis [Recovered/Resolved]
  - Tachycardia [Unknown]
  - Hypertension [Unknown]
  - Mental status changes [Unknown]
  - Apnoea [Unknown]
  - Eyelid ptosis [Unknown]
  - Respiratory failure [Unknown]
  - Hypopnoea [Unknown]
  - Muscular weakness [Unknown]
  - Hypoxia [Unknown]
